FAERS Safety Report 12342935 (Version 1)
Quarter: 2016Q2

REPORT INFORMATION
  Report Type: Spontaneous
  Country: HR (occurrence: HR)
  Receive Date: 20160506
  Receipt Date: 20160506
  Transmission Date: 20160815
  Serious: Yes (Life-Threatening, Other)
  Sender: FDA-Public Use
  Company Number: HR-TEVA-656480ACC

PATIENT
  Age: 30 Year
  Sex: Male
  Weight: 105 kg

DRUGS (1)
  1. METHOTREXATE [Suspect]
     Active Substance: METHOTREXATE
     Indication: ACUTE LYMPHOCYTIC LEUKAEMIA
     Dosage: 15; 15MG
     Route: 037
     Dates: start: 20160402, end: 20160402

REACTIONS (8)
  - Respiratory failure [Not Recovered/Not Resolved]
  - Disorientation [Not Recovered/Not Resolved]
  - Pyrexia [Not Recovered/Not Resolved]
  - Diplopia [Unknown]
  - Neurological decompensation [Not Recovered/Not Resolved]
  - Meningism [Not Recovered/Not Resolved]
  - Post lumbar puncture syndrome [Not Recovered/Not Resolved]
  - Muscular weakness [Not Recovered/Not Resolved]

NARRATIVE: CASE EVENT DATE: 20160404
